FAERS Safety Report 5481968-1 (Version None)
Quarter: 2007Q4

REPORT INFORMATION
  Report Type: 
  Country: None (occurrence: None)
  Receive Date: 20071005
  Receipt Date: 20070927
  Transmission Date: 20080405
  Serious: Yes (Other)
  Sender: FDA-Public Use
  Company Number: 2007SP018346

PATIENT
  Age: 51 Year
  Sex: Female
  Weight: 85.7298 kg

DRUGS (2)
  1. PEG-INTRON [Suspect]
     Indication: HEPATITIS C
     Dosage: 150 MCG; QW; SC; 97 MCG; QW; SC
     Route: 058
     Dates: start: 20070105
  2. RIBAVIRIN [Suspect]
     Indication: HEPATITIS C
     Dosage: 1200 MG; QD; PO; 800 MG; QD; PO
     Route: 048
     Dates: start: 20070105

REACTIONS (3)
  - ANAEMIA [None]
  - DISEASE RECURRENCE [None]
  - IRITIS [None]
